FAERS Safety Report 18802733 (Version 2)
Quarter: 2021Q1

REPORT INFORMATION
  Report Type: Spontaneous
  Country: FR (occurrence: FR)
  Receive Date: 20210129
  Receipt Date: 20210318
  Transmission Date: 20210419
  Serious: Yes (Hospitalization, Other)
  Sender: FDA-Public Use
  Company Number: FR-AUROBINDO-AUR-APL-2021-003140

PATIENT
  Age: 87 Year
  Sex: Female
  Weight: 48 kg

DRUGS (2)
  1. AMIODARONE ARROW [Suspect]
     Active Substance: AMIODARONE
     Indication: ATRIAL FIBRILLATION
     Dosage: 200 MILLIGRAM, ONCE A DAY
     Route: 048
     Dates: start: 202005, end: 20201103
  2. ATORVASTATINE EG [Interacting]
     Active Substance: ATORVASTATIN CALCIUM
     Indication: HYPERCHOLESTEROLAEMIA
     Dosage: 80 MILLIGRAM, ONCE A DAY
     Route: 048
     Dates: start: 202008, end: 20201103

REACTIONS (4)
  - Rhabdomyolysis [Recovered/Resolved]
  - Hepatocellular injury [Recovering/Resolving]
  - Cholestasis [Recovered/Resolved with Sequelae]
  - Jaundice [Recovered/Resolved]

NARRATIVE: CASE EVENT DATE: 20201102
